FAERS Safety Report 10475797 (Version 1)
Quarter: 2014Q3

REPORT INFORMATION
  Report Type: Spontaneous
  Country: US (occurrence: US)
  Receive Date: 20140925
  Receipt Date: 20140925
  Transmission Date: 20150326
  Serious: No
  Sender: FDA-Public Use
  Company Number: US-GLAXOSMITHKLINE-A1074021A

PATIENT
  Age: 11 Year
  Sex: Female
  Weight: 55 kg

DRUGS (3)
  1. ZYRTEC [Concomitant]
     Active Substance: CETIRIZINE HYDROCHLORIDE
  2. DYMISTA [Concomitant]
     Active Substance: AZELASTINE HYDROCHLORIDE\FLUTICASONE PROPIONATE
  3. CEFTIN [Suspect]
     Active Substance: CEFUROXIME AXETIL
     Indication: SINUSITIS
     Dosage: 10ML TWICE PER DAY
     Route: 048
     Dates: start: 20140505

REACTIONS (4)
  - Incorrect dose administered [Unknown]
  - Retching [Unknown]
  - Product quality issue [Unknown]
  - Vomiting [Unknown]

NARRATIVE: CASE EVENT DATE: 20140505
